FAERS Safety Report 23008409 (Version 5)
Quarter: 2023Q4

REPORT INFORMATION
  Report Type: Spontaneous
  Country: ES (occurrence: ES)
  Receive Date: 20230929
  Receipt Date: 20231025
  Transmission Date: 20240110
  Serious: Yes (Hospitalization, Other)
  Sender: FDA-Public Use
  Company Number: ES-BELPHARMA-2023000156

PATIENT
  Age: 63 Year
  Sex: Male

DRUGS (4)
  1. RISPERDAL [Suspect]
     Active Substance: RISPERIDONE
     Indication: Schizophrenia
     Route: 065
  2. QUETIAPINE [Suspect]
     Active Substance: QUETIAPINE
     Indication: Insomnia
     Route: 065
  3. PIMOZIDE [Suspect]
     Active Substance: PIMOZIDE
     Indication: Schizophrenia
     Dosage: 4 MG/DAY, THEN 10 MONTHS LATER 8 MG/DAY
     Route: 048
  4. PIMOZIDE [Suspect]
     Active Substance: PIMOZIDE
     Dosage: 4 MG/DAY, THEN 10 MONTHS LATER 8 MG/DAY
     Route: 048

REACTIONS (5)
  - Hypertransaminasaemia [Recovered/Resolved]
  - Parkinsonism [Recovered/Resolved]
  - Weight decreased [Recovered/Resolved]
  - Decreased appetite [Recovered/Resolved]
  - Cachexia [Recovered/Resolved]
